FAERS Safety Report 5703736-5 (Version None)
Quarter: 2008Q2

REPORT INFORMATION
  Report Type: 
  Country: None (occurrence: None)
  Receive Date: 20080413
  Receipt Date: 20080404
  Transmission Date: 20081010
  Serious: Yes (Hospitalization)
  Sender: FDA-Public Use
  Company Number: PHHY2008BR04734

PATIENT
  Sex: Female

DRUGS (1)
  1. EXELON [Suspect]
     Indication: DEMENTIA ALZHEIMER'S TYPE
     Dosage: 12 MG /DAY

REACTIONS (4)
  - DIARRHOEA [None]
  - DIZZINESS [None]
  - GASTROINTESTINAL HYPOMOTILITY [None]
  - NAUSEA [None]
